FAERS Safety Report 5139249-1 (Version None)
Quarter: 2006Q4

REPORT INFORMATION
  Report Type: 
  Country: None (occurrence: None)
  Receive Date: 20061030
  Receipt Date: 20061017
  Transmission Date: 20070319
  Serious: Yes (Hospitalization)
  Sender: FDA-Public Use
  Company Number: BE-JNJFOC-20060906611

PATIENT
  Sex: Female

DRUGS (3)
  1. CONTRAMAL [Suspect]
     Route: 048
  2. CONTRAMAL [Suspect]
     Indication: BACK PAIN
     Route: 048
  3. LANOXIN [Suspect]
     Indication: DRUG USE FOR UNKNOWN INDICATION
     Route: 065

REACTIONS (6)
  - BRADYCARDIA [None]
  - DEHYDRATION [None]
  - HYPERTHYROIDISM [None]
  - HYPOKALAEMIA [None]
  - NAUSEA [None]
  - THERAPEUTIC AGENT TOXICITY [None]
